FAERS Safety Report 8871209 (Version 2)
Quarter: 2012Q4

REPORT INFORMATION
  Report Type: 
  Country: US (occurrence: US)
  Receive Date: 20121029
  Receipt Date: 20121121
  Transmission Date: 20130627
  Serious: Yes (Other)
  Sender: FDA-Public Use
  Company Number: US-PFIZER INC-2012269001

PATIENT
  Age: 55 Year
  Sex: Female

DRUGS (6)
  1. LIPITOR [Suspect]
     Dosage: 10 mg, 1x/day
     Dates: start: 20010913
  2. ZOLOFT [Concomitant]
     Dosage: 50 mg, 1x/day
  3. RETIN A [Concomitant]
     Dosage: 0.05 %, UNK
  4. ORTHOTRICYCLINE [Concomitant]
     Dosage: UNK
  5. XANAX [Concomitant]
     Dosage: 0.25 mg, 3x/day as needed
     Dates: start: 20040921
  6. TRANSDERM-SCOP [Concomitant]
     Dosage: one q72 PRN

REACTIONS (1)
  - Type 2 diabetes mellitus [Unknown]
